FAERS Safety Report 8122136-4 (Version None)
Quarter: 2012Q1

REPORT INFORMATION
  Report Type: 
  Country: None (occurrence: None)
  Receive Date: 20120208
  Receipt Date: 20120130
  Transmission Date: 20120608
  Serious: Yes (Other)
  Sender: FDA-Public Use
  Company Number: US-BAYER-2011-047347

PATIENT
  Age: 38 Year
  Sex: Female
  Weight: 63.492 kg

DRUGS (3)
  1. YAZ [Suspect]
     Dosage: UNK
     Dates: start: 20080101
  2. MULTI-VITAMIN [Concomitant]
     Indication: IRON DEFICIENCY
     Dosage: UNK
     Dates: start: 20080325
  3. CLINDAMYCIN PHOSPHATE [Concomitant]
     Dosage: UNK
     Dates: start: 20080325

REACTIONS (5)
  - EMOTIONAL DISTRESS [None]
  - INJURY [None]
  - PULMONARY EMBOLISM [None]
  - ANXIETY [None]
  - PAIN [None]
